FAERS Safety Report 8380653-6 (Version None)
Quarter: 2012Q2

REPORT INFORMATION
  Report Type: 
  Country: None (occurrence: None)
  Receive Date: 20120523
  Receipt Date: 20120510
  Transmission Date: 20120825
  Serious: Yes (Death, Hospitalization)
  Sender: FDA-Public Use
  Company Number: DE-CELGENEUS-062-50794-11121463

PATIENT
  Age: 72 Year
  Sex: Female
  Weight: 55 kg

DRUGS (12)
  1. VIDAZA [Suspect]
     Dosage: 130 MILLIGRAM
     Route: 058
     Dates: start: 20111017, end: 20111128
  2. DIPYRONE TAB [Concomitant]
     Indication: PAIN
     Route: 065
  3. FENTANYL-100 [Concomitant]
     Indication: PAIN
     Route: 061
     Dates: start: 20111130
  4. PANTOPRAZOLE [Concomitant]
     Route: 048
  5. DIFLUCAN [Concomitant]
     Indication: PANCYTOPENIA
  6. MOUTH RINSE [Concomitant]
     Route: 048
  7. GRANISETRON [Concomitant]
     Route: 048
  8. VIDAZA [Suspect]
  9. LEVOTHYROXINE SODIUM [Concomitant]
     Indication: THYROID DISORDER
     Route: 048
  10. EXJADE [Concomitant]
     Route: 048
     Dates: start: 20071001
  11. LEVOFLOXACIN [Concomitant]
     Indication: ANTIBIOTIC THERAPY
     Route: 048
  12. DIFLUCAN [Concomitant]
     Indication: ANTIFUNGAL PROPHYLAXIS
     Route: 048

REACTIONS (11)
  - CACHEXIA [None]
  - MUCOSAL INFLAMMATION [None]
  - SEPSIS [None]
  - DYSPHAGIA [None]
  - AGRANULOCYTOSIS [None]
  - DEHYDRATION [None]
  - DECREASED APPETITE [None]
  - OESOPHAGEAL CANDIDIASIS [None]
  - ORAL CANDIDIASIS [None]
  - PANCYTOPENIA [None]
  - RENAL FAILURE CHRONIC [None]
